FAERS Safety Report 12985731 (Version 1)
Quarter: 2016Q4

REPORT INFORMATION
  Report Type: Spontaneous
  Country: US (occurrence: US)
  Receive Date: 20161130
  Receipt Date: 20161130
  Transmission Date: 20170207
  Serious: Yes (Hospitalization, Other)
  Sender: FDA-Public Use
  Company Number: US-SHIRE-US201617940

PATIENT
  Age: 29 Month
  Sex: Male

DRUGS (1)
  1. 433 (CARBAMAZEPINE) [Suspect]
     Active Substance: CARBAMAZEPINE
     Indication: ACCIDENTAL EXPOSURE TO PRODUCT BY CHILD
     Dosage: UNK, UNKNOWN
     Route: 048

REACTIONS (2)
  - Accidental exposure to product by child [Unknown]
  - Toxicity to various agents [Unknown]
